FAERS Safety Report 18633749 (Version 2)
Quarter: 2020Q4

REPORT INFORMATION
  Report Type: Report from Study
  Country: SE (occurrence: SE)
  Receive Date: 20201218
  Receipt Date: 20201230
  Transmission Date: 20210114
  Serious: Yes (Life-Threatening, Hospitalization)
  Sender: FDA-Public Use
  Company Number: SE-JNJFOC-20201230507

PATIENT
  Age: 58 Year
  Sex: Female
  Weight: 102 kg

DRUGS (13)
  1. DUROFERON [Concomitant]
     Active Substance: FERROUS SULFATE
     Indication: GASTRIC BYPASS
     Route: 048
     Dates: start: 2002
  2. DULOXETINE. [Concomitant]
     Active Substance: DULOXETINE
     Indication: DEPRESSION
     Route: 048
     Dates: start: 20170817
  3. VICTOZA [Concomitant]
     Active Substance: LIRAGLUTIDE
     Route: 058
     Dates: start: 20190703
  4. ALVEDON [Concomitant]
     Active Substance: ACETAMINOPHEN
     Indication: ARTHRALGIA
     Route: 048
     Dates: start: 20191126
  5. KALCIPOS-D [Concomitant]
     Active Substance: CALCIUM CARBONATE\CHOLECALCIFEROL
     Indication: GASTRIC BYPASS
     Route: 048
     Dates: start: 2002
  6. BEHEPAN [CYANOCOBALAMIN] [Concomitant]
     Active Substance: CYANOCOBALAMIN
     Indication: GASTRIC BYPASS
     Route: 048
  7. DIKLOFENAK [DICLOFENAC] [Concomitant]
     Indication: ARTHRALGIA
     Route: 048
     Dates: start: 20191126
  8. ATORVASTATIN [Concomitant]
     Active Substance: ATORVASTATIN
     Indication: HYPERCHOLESTEROLAEMIA
     Route: 048
     Dates: start: 20190503
  9. NOVALUCOL [CALCIUM CARBONATE;MAGNESIUM HYDROXIDE] [Concomitant]
     Indication: BRONCHIAL HYPERREACTIVITY
     Dosage: 2 TABLETS TWICE DAILY
     Route: 048
     Dates: start: 20200922
  10. ESKETAMINE [Suspect]
     Active Substance: ESKETAMINE
     Indication: DEPRESSION
     Dosage: MOST RECENT DOSE ON 27/NOV/2020
     Dates: start: 20170928
  11. ESOMEPRAZOLE. [Concomitant]
     Active Substance: ESOMEPRAZOLE MAGNESIUM
     Indication: GASTRITIS
     Route: 048
     Dates: start: 20180607
  12. PROPAVAN [Concomitant]
     Active Substance: PROPIOMAZINE
     Indication: DEPRESSION
     Route: 048
     Dates: start: 20190506
  13. VICTOZA [Concomitant]
     Active Substance: LIRAGLUTIDE
     Indication: DIABETES MELLITUS
     Route: 058
     Dates: start: 20171031, end: 20171115

REACTIONS (1)
  - COVID-19 [Not Recovered/Not Resolved]

NARRATIVE: CASE EVENT DATE: 20201202
